FAERS Safety Report 7039665-7 (Version None)
Quarter: 2010Q4

REPORT INFORMATION
  Report Type: 
  Country: None (occurrence: None)
  Receive Date: 20101012
  Receipt Date: 20101005
  Transmission Date: 20110411
  Serious: Yes (Hospitalization)
  Sender: FDA-Public Use
  Company Number: B0677703A

PATIENT
  Sex: Female

DRUGS (10)
  1. AUGMENTIN '125' [Suspect]
     Indication: ANTIBIOTIC PROPHYLAXIS
     Route: 042
     Dates: start: 20100806, end: 20100806
  2. SUFENTANIL CITRATE [Suspect]
     Route: 042
     Dates: start: 20100806, end: 20100806
  3. PROPOFOL [Suspect]
     Route: 042
     Dates: start: 20100806, end: 20100806
  4. SUPRANE [Suspect]
     Dosage: .3PCT SINGLE DOSE
     Route: 055
     Dates: start: 20100806, end: 20100806
  5. ZANTAC [Concomitant]
     Route: 065
  6. ATARAX [Concomitant]
     Route: 065
  7. DESOGESTREL [Concomitant]
     Dosage: 20MCG UNKNOWN
     Route: 065
  8. TOPALGIC (FRANCE) [Concomitant]
     Indication: PREOPERATIVE CARE
     Route: 065
  9. DROPERIDOL [Concomitant]
     Indication: PREOPERATIVE CARE
     Route: 065
  10. PARACETAMOL [Concomitant]
     Route: 065

REACTIONS (4)
  - HYPERSENSITIVITY [None]
  - HYPOTENSION [None]
  - RASH [None]
  - SHOCK [None]
